FAERS Safety Report 8988602 (Version 1)
Quarter: 2012Q4

REPORT INFORMATION
  Report Type: 
  Country: AU (occurrence: AU)
  Receive Date: 20121228
  Receipt Date: 20121228
  Transmission Date: 20130627
  Serious: Yes (Other)
  Sender: FDA-Public Use
  Company Number: AU-PFIZER INC-2012331215

PATIENT
  Sex: Female

DRUGS (2)
  1. SOMAC [Suspect]
     Indication: HIATUS HERNIA
     Dosage: 40 mg, 1x/day
     Route: 048
     Dates: start: 20120313, end: 20121209
  2. SERETIDE MITE [Concomitant]

REACTIONS (3)
  - Feeling hot [Recovered/Resolved]
  - Feeling abnormal [Recovered/Resolved]
  - Malaise [Recovered/Resolved]
